FAERS Safety Report 18899658 (Version 1)
Quarter: 2021Q1

REPORT INFORMATION
  Report Type: Report from Study
  Country: IT (occurrence: IT)
  Receive Date: 20210216
  Receipt Date: 20210216
  Transmission Date: 20210420
  Serious: Yes (Hospitalization)
  Sender: FDA-Public Use
  Company Number: IT-TEVA-2021-IT-1879564

PATIENT
  Age: 84 Year
  Sex: Female

DRUGS (9)
  1. TORVAST 20 MG COMPRESSE RIVESTITE CON FILM [Concomitant]
  2. CARDIOASPIRIN [Suspect]
     Active Substance: ASPIRIN
     Dates: start: 20200101, end: 20201230
  3. CORDARONE [Concomitant]
     Active Substance: AMIODARONE HYDROCHLORIDE
  4. NORVASC [Concomitant]
     Active Substance: AMLODIPINE BESYLATE
  5. TAREG 160 MG COMPRESSE RIVESTITE CON FILM [Concomitant]
  6. LIXIANA 30 MG FILM?COATED TABLETS [Suspect]
     Active Substance: EDOXABAN TOSYLATE
     Dates: start: 20200101, end: 20201230
  7. LASIX [Concomitant]
     Active Substance: FUROSEMIDE
  8. CLOPIDOGREL [Suspect]
     Active Substance: CLOPIDOGREL BISULFATE
     Dates: start: 20200101, end: 20201230
  9. PANTORC 20 MG COMPRESSE GASTRORESISTENTI [Concomitant]
     Active Substance: PANTOPRAZOLE SODIUM

REACTIONS (2)
  - Anaemia [Unknown]
  - Haemoglobin decreased [Unknown]

NARRATIVE: CASE EVENT DATE: 20201230
